FAERS Safety Report 4663813-7 (Version None)
Quarter: 2005Q2

REPORT INFORMATION
  Report Type: 
  Country: None (occurrence: None)
  Receive Date: 20050516
  Receipt Date: 20050503
  Transmission Date: 20051028
  Serious: Yes (Other)
  Sender: FDA-Public Use
  Company Number: 2005070368

PATIENT
  Sex: Female

DRUGS (1)
  1. CELEBREX [Suspect]
     Indication: OSTEOARTHRITIS
     Dosage: ORAL
     Route: 048

REACTIONS (3)
  - ARTHRITIS [None]
  - PRURITUS GENERALISED [None]
  - RESPIRATORY DISTRESS [None]
